FAERS Safety Report 7000050-5 (Version None)
Quarter: 2010Q3

REPORT INFORMATION
  Report Type: 
  Country: None (occurrence: None)
  Receive Date: 20100920
  Receipt Date: 20080130
  Transmission Date: 20110219
  Serious: No
  Sender: FDA-Public Use
  Company Number: US-ASTRAZENECA-2006UW11672

PATIENT
  Age: 45 Year
  Sex: Female
  Weight: 69.4 kg

DRUGS (17)
  1. SEROQUEL [Suspect]
     Indication: BIPOLAR DISORDER
     Dosage: 25 - 325 MG DAILY
     Route: 048
     Dates: start: 20041119
  2. SEROQUEL [Suspect]
     Route: 048
     Dates: end: 20050101
  3. ZYPREXA [Concomitant]
  4. NAVANE [Concomitant]
  5. NEXIUM [Concomitant]
     Route: 048
     Dates: start: 20011009
  6. ZOLOFT [Concomitant]
     Dosage: 30 - 200 MG DAILY
     Route: 048
     Dates: start: 20031103
  7. KLONOPIN [Concomitant]
     Dosage: 0.5 - 1 MG DAILY
     Route: 048
     Dates: start: 20031103
  8. ACTOS [Concomitant]
     Indication: BLOOD GLUCOSE INCREASED
     Route: 048
     Dates: start: 20031223
  9. GEODON [Concomitant]
     Dosage: 20 - 40 MG
     Route: 048
     Dates: start: 20040926
  10. RISPERDAL [Concomitant]
     Dosage: 0.25 - 2 MG DAILY
     Route: 048
     Dates: start: 20040126
  11. VALTREX [Concomitant]
     Dosage: 50 - 1000 MG DAILY
     Dates: start: 20031223
  12. ZYRTEC [Concomitant]
     Dates: start: 20040927
  13. LITHIUM CARBONATE [Concomitant]
     Dosage: 150 - 300 MG
     Dates: start: 20040927
  14. BUMETANIDE [Concomitant]
     Dates: start: 20041020
  15. TEMAZEPAM [Concomitant]
     Dates: start: 20041021
  16. TOPAMAX [Concomitant]
     Dates: start: 20041021
  17. PROPOXYPHENE NAPSYLATE AND ACETAMINOPHEN [Concomitant]
     Dosage: 100 / 650 MG
     Dates: start: 20041021

REACTIONS (4)
  - BLOOD CHOLESTEROL INCREASED [None]
  - DIABETES MELLITUS [None]
  - GESTATIONAL DIABETES [None]
  - OBESITY [None]
